FAERS Safety Report 24747518 (Version 1)
Quarter: 2024Q4

REPORT INFORMATION
  Report Type: Spontaneous
  Country: US (occurrence: US)
  Receive Date: 20241218
  Receipt Date: 20241218
  Transmission Date: 20250114
  Serious: No
  Sender: ALEXION PHARMACEUTICALS
  Company Number: US-AstraZeneca-CH-00769289A

PATIENT

DRUGS (4)
  1. WAINUA [Suspect]
     Active Substance: EPLONTERSEN
     Indication: Acquired ATTR amyloidosis
  2. WAINUA [Suspect]
     Active Substance: EPLONTERSEN
     Route: 058
  3. WAINUA [Suspect]
     Active Substance: EPLONTERSEN
  4. WAINUA [Suspect]
     Active Substance: EPLONTERSEN
     Route: 058

REACTIONS (1)
  - Rash [Not Recovered/Not Resolved]
